FAERS Safety Report 8783201 (Version 2)
Quarter: 2012Q4

REPORT INFORMATION
  Report Type: 
  Country: US (occurrence: US)
  Receive Date: 20120913
  Receipt Date: 20121004
  Transmission Date: 20130627
  Serious: Yes (Other)
  Sender: FDA-Public Use
  Company Number: US-JNJFOC-20120903857

PATIENT
  Age: 54 Year
  Sex: Female

DRUGS (1)
  1. ULTRAM [Suspect]
     Indication: PAIN
     Route: 065

REACTIONS (2)
  - Throat tightness [Recovered/Resolved]
  - Dyspnoea [Unknown]
